FAERS Safety Report 18229115 (Version 1)
Quarter: 2020Q3

REPORT INFORMATION
  Report Type: Spontaneous
  Country: US (occurrence: US)
  Receive Date: 20200903
  Receipt Date: 20200903
  Transmission Date: 20201103
  Serious: No
  Sender: FDA-Public Use
  Company Number: US-ASTRAZENECA-2020SF04119

PATIENT
  Age: 53 Year
  Sex: Male

DRUGS (1)
  1. XIGDUO XR [Suspect]
     Active Substance: DAPAGLIFLOZIN PROPANEDIOL\METFORMIN HYDROCHLORIDE
     Indication: DIABETES MELLITUS
     Dosage: 5/1000MG 2 TABLETS EACH MORNING
     Route: 048
     Dates: start: 201508

REACTIONS (3)
  - Lipase increased [Unknown]
  - Illness [Unknown]
  - Abdominal pain [Unknown]
